FAERS Safety Report 16062832 (Version 1)
Quarter: 2019Q1

REPORT INFORMATION
  Report Type: Spontaneous
  Country: US (occurrence: US)
  Receive Date: 20190312
  Receipt Date: 20190312
  Transmission Date: 20190418
  Serious: Yes (Hospitalization)
  Sender: FDA-Public Use
  Company Number: US-UPSHER-SMITH LABORATORIES, LLC-2019USL00153

PATIENT
  Age: 55 Year
  Sex: Female

DRUGS (11)
  1. MIDODRINE HYDROCHLORIDE. [Suspect]
     Active Substance: MIDODRINE HYDROCHLORIDE
     Indication: HYPOTENSION
     Dosage: 5 MG, 2X/DAY
     Route: 048
     Dates: start: 201901, end: 201902
  2. HUMALOG [Concomitant]
     Active Substance: INSULIN LISPRO
     Dosage: UNK, AS DIRECTED (RATIO SCALE)
  3. COMBIGAN [Concomitant]
     Active Substance: BRIMONIDINE TARTRATE\TIMOLOL MALEATE
  4. ZOLPIDEM [Concomitant]
     Active Substance: ZOLPIDEM\ZOLPIDEM TARTRATE
  5. LUMIGAN [Concomitant]
     Active Substance: BIMATOPROST
  6. RESTASIS [Concomitant]
     Active Substance: CYCLOSPORINE
  7. LANTUS [Concomitant]
     Active Substance: INSULIN GLARGINE
     Dosage: 6 U, 1X/DAY (AM)
  8. LANTUS [Concomitant]
     Active Substance: INSULIN GLARGINE
     Dosage: 5 U, 1X/DAY (PM)
  9. DIAZEPAM. [Concomitant]
     Active Substance: DIAZEPAM
  10. MIDODRINE HYDROCHLORIDE. [Suspect]
     Active Substance: MIDODRINE HYDROCHLORIDE
     Dosage: 10 MG, 3X/DAY
     Route: 048
     Dates: start: 201902
  11. SIMVASTATIN. [Concomitant]
     Active Substance: SIMVASTATIN

REACTIONS (4)
  - Syncope [Unknown]
  - Rib fracture [Unknown]
  - Blood glucose increased [Not Recovered/Not Resolved]
  - Fall [Unknown]

NARRATIVE: CASE EVENT DATE: 2019
